FAERS Safety Report 8504122-5 (Version None)
Quarter: 2012Q2

REPORT INFORMATION
  Report Type: 
  Country: None (occurrence: None)
  Receive Date: 20120405
  Receipt Date: 20101116
  Transmission Date: 20120825
  Serious: Yes (Other)
  Sender: FDA-Public Use
  Company Number: PHHY2010US74337

PATIENT
  Age: 64 Year
  Sex: Female
  Weight: 60.3 kg

DRUGS (6)
  1. HIMOX (AMOXICILLIN TRIHYDRATE) [Concomitant]
  2. RECLAST [Suspect]
     Dosage: INFUSION
  3. NEXIUM (ESOMEPRAZOLE MAGENESIUM) [Concomitant]
  4. OXYBUTYNIN [Concomitant]
  5. SYNTHROID [Concomitant]
  6. NITROTAB (GLYCERYL TRINITRATE) [Concomitant]

REACTIONS (2)
  - OSTEOPENIA [None]
  - ARTHRALGIA [None]
